FAERS Safety Report 9716256 (Version 1)
Quarter: 2013Q4

REPORT INFORMATION
  Report Type: Spontaneous
  Country: US (occurrence: None)
  Receive Date: 20131126
  Receipt Date: 20131126
  Transmission Date: 20140711
  Serious: Yes (Hospitalization)
  Sender: FDA-Public Use
  Company Number: None

PATIENT
  Age: 77 Year
  Sex: Male
  Weight: 75.9 kg

DRUGS (2)
  1. HYDROCHLOROTHIAZIDE (+) LISINOPRIL [Suspect]
     Indication: HYPERTENSION
     Dosage: MG, EVERY DAY, PO
     Route: 048
     Dates: start: 20110610, end: 20131116
  2. VANCOMYCIN [Suspect]
     Indication: SOFT TISSUE INFECTION
     Dosage: 1.5 GM, EVERY DAY, IV
     Route: 042
     Dates: start: 20131112, end: 20131116

REACTIONS (3)
  - Hypotension [None]
  - Renal failure acute [None]
  - Drug level increased [None]
